FAERS Safety Report 8607721-5 (Version None)
Quarter: 2012Q3

REPORT INFORMATION
  Report Type: 
  Country: None (occurrence: None)
  Receive Date: 20120821
  Receipt Date: 20120815
  Transmission Date: 20120928
  Serious: Yes (Other)
  Sender: FDA-Public Use
  Company Number: US-PFIZER INC-2012200031

PATIENT
  Age: 42 Year

DRUGS (1)
  1. PREMPRO [Suspect]
     Dosage: 0.45 -1.5 MG 1 TAB DAILY

REACTIONS (1)
  - BACK DISORDER [None]
